FAERS Safety Report 8068034-6 (Version None)
Quarter: 2012Q1

REPORT INFORMATION
  Report Type: 
  Country: None (occurrence: None)
  Receive Date: 20120124
  Receipt Date: 20110923
  Transmission Date: 20120608
  Serious: No
  Sender: FDA-Public Use
  Company Number: US-AMGEN-USASP2011049445

PATIENT
  Age: 70 Year
  Sex: Female

DRUGS (5)
  1. PROBIOTIC [Concomitant]
  2. ZOLOFT [Concomitant]
     Dosage: UNK
  3. PROLIA [Suspect]
     Indication: OSTEOPOROSIS POSTMENOPAUSAL
     Dosage: 60 MG, Q6MO
     Dates: start: 20110516
  4. VITAMIN TAB [Concomitant]
  5. LOVAZA [Concomitant]

REACTIONS (8)
  - MYALGIA [None]
  - CYSTITIS [None]
  - BACK PAIN [None]
  - PAIN IN EXTREMITY [None]
  - GENERALISED OEDEMA [None]
  - GAIT DISTURBANCE [None]
  - INFECTION [None]
  - OEDEMA PERIPHERAL [None]
